FAERS Safety Report 7712749-3 (Version None)
Quarter: 2011Q3

REPORT INFORMATION
  Report Type: 
  Country: None (occurrence: None)
  Receive Date: 20110826
  Receipt Date: 20100903
  Transmission Date: 20111222
  Serious: Yes (Other)
  Sender: FDA-Public Use
  Company Number: US-GLAXOSMITHKLINE-A0879559A

PATIENT
  Age: 39 Year
  Sex: Female

DRUGS (7)
  1. CELEXA [Concomitant]
  2. LAMICTAL [Suspect]
     Indication: DEPRESSION
     Dosage: 100MG PER DAY
     Route: 048
     Dates: start: 20080101
  3. LEVOXYL [Concomitant]
  4. VYVANSE [Suspect]
     Indication: ATTENTION DEFICIT/HYPERACTIVITY DISORDER
     Dosage: 100MG PER DAY
     Dates: start: 20100101
  5. LAMICTAL [Suspect]
     Dosage: 100MG PER DAY
     Route: 048
     Dates: start: 20080101
  6. PROZAC [Concomitant]
  7. ASCORBIC ACID [Concomitant]

REACTIONS (14)
  - VOMITING [None]
  - DRUG INTERACTION [None]
  - FEELING ABNORMAL [None]
  - HAEMATOCHEZIA [None]
  - GALLBLADDER DISORDER [None]
  - DRUG ADMINISTRATION ERROR [None]
  - DIARRHOEA [None]
  - RASH [None]
  - PAIN [None]
  - HEADACHE [None]
  - NAUSEA [None]
  - DRUG INEFFECTIVE [None]
  - RHABDOMYOLYSIS [None]
  - DIZZINESS [None]
